FAERS Safety Report 8613008 (Version 5)
Quarter: 2013Q3

REPORT INFORMATION
  Report Type: Report from Study
  Country: DK (occurrence: JP)
  Receive Date: 20120613
  Receipt Date: 20130903
  Transmission Date: 20140515
  Serious: Yes (Life-Threatening, Hospitalization)
  Sender: FDA-Public Use
  Company Number: JP-FRI-1000031155

PATIENT
  Age: 20 Year
  Sex: Female
  Weight: 50 kg

DRUGS (4)
  1. ESCITALOPRAM [Suspect]
     Indication: DEPRESSION
     Dosage: 10 MG
     Route: 048
     Dates: start: 20120213, end: 20120410
  2. ROHYPNOL [Suspect]
     Indication: DEPRESSION
     Dosage: 2 MG
     Route: 048
     Dates: start: 20120223, end: 20120410
  3. MYSLEE [Suspect]
     Indication: DEPRESSION
     Dosage: 10 MG
     Route: 048
     Dates: start: 20120227, end: 20120410
  4. RIZE [Suspect]
     Indication: DEPRESSION
     Dosage: 15 MG
     Route: 048
     Dates: start: 20120223, end: 20120410

REACTIONS (2)
  - Toxicity to various agents [Recovered/Resolved]
  - Overdose [Recovered/Resolved]
